FAERS Safety Report 8016891-1 (Version None)
Quarter: 2012Q1

REPORT INFORMATION
  Report Type: 
  Country: None (occurrence: None)
  Receive Date: 20120102
  Receipt Date: 20111220
  Transmission Date: 20120608
  Serious: Yes (Hospitalization, Other)
  Sender: FDA-Public Use
  Company Number: PHHY2010CA61979

PATIENT
  Sex: Female

DRUGS (6)
  1. SANDOSTATIN [Suspect]
     Dosage: 20 MG, QW3
     Route: 030
     Dates: start: 20100729
  2. SANDOSTATIN [Suspect]
     Indication: CROHN'S DISEASE
     Dosage: 100 UG, BID
     Route: 058
     Dates: start: 20100101
  3. SANDOSTATIN [Suspect]
     Dosage: 100 UG, BID
     Route: 058
     Dates: start: 20100201
  4. SANDOSTATIN LAR [Suspect]
     Indication: CROHN'S DISEASE
     Dosage: 30 MG, QMO
     Route: 030
     Dates: start: 20100729, end: 20100831
  5. SANDOSTATIN LAR [Suspect]
     Dosage: 30 MG, TIW
     Route: 030
  6. SANDOSTATIN LAR [Suspect]
     Dosage: 40 MG, EVERY 4 WEEKS
     Route: 030
     Dates: start: 20101018

REACTIONS (8)
  - DRUG EFFECT DECREASED [None]
  - DIARRHOEA [None]
  - BODY TEMPERATURE DECREASED [None]
  - HYPOTENSION [None]
  - FOOT FRACTURE [None]
  - INTESTINAL OBSTRUCTION [None]
  - DEHYDRATION [None]
  - WOUND INFECTION [None]
